FAERS Safety Report 5214146-1 (Version None)
Quarter: 2007Q1

REPORT INFORMATION
  Report Type: 
  Country: None (occurrence: None)
  Receive Date: 20070122
  Receipt Date: 20070115
  Transmission Date: 20070707
  Serious: Yes (Life-Threatening, Other)
  Sender: FDA-Public Use
  Company Number: PHEH2006US15365

PATIENT
  Age: 49 Year
  Sex: Female

DRUGS (11)
  1. ZELNORM [Suspect]
     Indication: IRRITABLE BOWEL SYNDROME
     Dosage: 6 MG, BID
     Route: 048
     Dates: start: 20061120, end: 20061218
  2. ZELNORM [Suspect]
     Dosage: 6 MG, QD
     Dates: start: 20061221
  3. LEXAPRO [Suspect]
     Indication: DEPRESSION
     Dosage: 10 MG, QD
     Route: 048
     Dates: end: 20061218
  4. CYMBALTA [Suspect]
     Indication: DEPRESSION
     Dosage: 30 MG, QD
     Route: 048
     Dates: start: 20061019, end: 20061217
  5. CYMBALTA [Suspect]
     Dosage: UNK, UNK
     Dates: start: 20061219
  6. DEXIDRINE [Concomitant]
     Indication: DISTURBANCE IN ATTENTION
     Dosage: 10 MG, QD
     Dates: start: 20060323
  7. TEGRETOL [Concomitant]
     Indication: CONVULSION
     Dosage: 1200 MG, QD
     Route: 048
  8. ATENOLOL [Concomitant]
     Dosage: 25 MG, QD
     Route: 048
  9. DOXYCYCLINE [Concomitant]
     Dosage: 20 MG, QD
     Route: 048
  10. LORTAB [Concomitant]
     Dosage: UNK, TID
     Route: 048
  11. OXYCODONE HCL [Concomitant]
     Dosage: UNK, QD2SDO
     Route: 048

REACTIONS (7)
  - BLOOD PRESSURE INCREASED [None]
  - DRUG INTERACTION [None]
  - HYPERSOMNIA [None]
  - INSOMNIA [None]
  - NAUSEA [None]
  - OESOPHAGITIS [None]
  - PRODUCTIVE COUGH [None]
